FAERS Safety Report 10313856 (Version 1)
Quarter: 2014Q3

REPORT INFORMATION
  Report Type: Spontaneous
  Country: NO (occurrence: NO)
  Receive Date: 20140718
  Receipt Date: 20140718
  Transmission Date: 20150326
  Serious: Yes (Death, Other)
  Sender: FDA-Public Use
  Company Number: NO-SA-2014SA092242

PATIENT
  Age: 74 Year
  Sex: Female

DRUGS (3)
  1. KLEXANE [Suspect]
     Active Substance: ENOXAPARIN
     Indication: EMBOLISM VENOUS
     Dosage: THE MORNING DOSE 60 MG AND EVENING DOSE 80 MG
     Route: 058
     Dates: start: 20140201, end: 20140531
  2. COZAAR COMP [Concomitant]
     Active Substance: HYDROCHLOROTHIAZIDE\LOSARTAN POTASSIUM
     Dosage: 100 MG / 12.5 MG
     Route: 048
  3. KLEXANE [Suspect]
     Active Substance: ENOXAPARIN
     Indication: ATRIAL FIBRILLATION
     Dosage: THE MORNING DOSE 60 MG AND EVENING DOSE 80 MG
     Route: 058
     Dates: start: 20140201, end: 20140531

REACTIONS (3)
  - Fall [Unknown]
  - Subdural haematoma [Fatal]
  - Coma [Fatal]

NARRATIVE: CASE EVENT DATE: 20140529
